FAERS Safety Report 4410650-4 (Version None)
Quarter: 2004Q3

REPORT INFORMATION
  Report Type: 
  Country: None (occurrence: None)
  Receive Date: 20040728
  Receipt Date: 20040728
  Transmission Date: 20050211
  Serious: No
  Sender: FDA-Public Use
  Company Number: None

PATIENT

DRUGS (2)
  1. TUBERSOL [Suspect]
     Indication: TUBERCULIN TEST
     Dosage: 5 TU SUBQ
     Route: 058
     Dates: start: 20040712
  2. TUBERSOL [Suspect]
     Indication: TUBERCULIN TEST
     Dosage: 5 TU SUBQ
     Route: 058
     Dates: start: 20040714

REACTIONS (8)
  - FALSE POSITIVE TUBERCULOSIS TEST [None]
  - INJECTION SITE INDURATION [None]
  - INJECTION SITE PAIN [None]
  - INJECTION SITE PRURITUS [None]
  - INJECTION SITE WARMTH [None]
  - PAIN [None]
  - PHARMACEUTICAL PRODUCT COMPLAINT [None]
  - TUBERCULIN TEST POSITIVE [None]
